FAERS Safety Report 17412265 (Version 1)
Quarter: 2020Q1

REPORT INFORMATION
  Report Type: Spontaneous
  Country: US (occurrence: US)
  Receive Date: 20200129
  Receipt Date: 20200129
  Transmission Date: 20200409
  Serious: No
  Sender: FDA-Public Use
  Company Number: None

PATIENT
  Age: 65 Year
  Sex: Male

DRUGS (1)
  1. AVEED [Suspect]
     Active Substance: TESTOSTERONE UNDECANOATE
     Indication: TESTICULAR FAILURE
     Dosage: ?          OTHER FREQUENCY:EVERY 10 WEEKS;OTHER ROUTE:IM?
     Route: 030
     Dates: start: 201809

REACTIONS (2)
  - Incorrect dose administered by device [None]
  - Product administration error [None]

NARRATIVE: CASE EVENT DATE: 20200115
